FAERS Safety Report 16326835 (Version 2)
Quarter: 2019Q3

REPORT INFORMATION
  Report Type: Spontaneous
  Country: US (occurrence: US)
  Receive Date: 20190517
  Receipt Date: 20190704
  Transmission Date: 20191004
  Serious: Yes (Death, Hospitalization, Other)
  Sender: FDA-Public Use
  Company Number: US-ASTRAZENECA-2019SE73525

PATIENT
  Age: 25227 Day
  Sex: Female

DRUGS (1)
  1. IMFINZI [Suspect]
     Active Substance: DURVALUMAB
     Route: 042
     Dates: start: 20180405, end: 20190314

REACTIONS (7)
  - Pneumonia [Unknown]
  - Septic shock [Unknown]
  - Acute coronary syndrome [Not Recovered/Not Resolved]
  - Pneumonitis [Fatal]
  - Cardiac failure congestive [Not Recovered/Not Resolved]
  - Myocardial infarction [Fatal]
  - Respiratory distress [Not Recovered/Not Resolved]

NARRATIVE: CASE EVENT DATE: 20190427
